FAERS Safety Report 8301870-7 (Version None)
Quarter: 2012Q2

REPORT INFORMATION
  Report Type: 
  Country: None (occurrence: None)
  Receive Date: 20120420
  Receipt Date: 20120413
  Transmission Date: 20120825
  Serious: Yes (Death, Hospitalization, Other)
  Sender: FDA-Public Use
  Company Number: PHEH2012US007969

PATIENT
  Age: 48 Year
  Sex: Female

DRUGS (14)
  1. BENICAR HCT [Concomitant]
     Dosage: 40 MG/12.5 MG (1 TABLET DAILY)
     Route: 048
  2. FLONASE [Concomitant]
     Dosage: 2 SPRAYS TO EACH NOSTRIL DAILY
  3. NEURONTIN [Concomitant]
     Dosage: 1 DF, TID
     Route: 048
  4. GILENYA [Suspect]
     Indication: PROGRESSIVE RELAPSING MULTIPLE SCLEROSIS
     Dosage: 0.5 MG, QD
     Route: 048
     Dates: start: 20110524
  5. ZOCOR [Concomitant]
     Dosage: 1 DF, EVERY EVENING
     Route: 048
  6. FOLIC ACID [Concomitant]
     Dosage: 1 DF, BID
     Route: 048
  7. MULTI-VITAMINS [Concomitant]
     Route: 048
  8. SYNTHROID [Concomitant]
     Dosage: 1 DF, DAILY
     Route: 048
  9. VITAMIN D [Concomitant]
     Dosage: 2 DF, DAILY
     Route: 048
  10. OS-CAL + D [Concomitant]
     Dosage: 500-500 MG, BID
     Route: 048
  11. LIORESAL [Concomitant]
     Dosage: 1 DF, TID
     Route: 048
  12. CELEBREX [Concomitant]
     Dosage: 1 DF, DAILY
     Route: 048
  13. XANAX [Concomitant]
     Indication: ANXIETY
     Dosage: 1 DF, Q6H
     Route: 048
  14. PREDNISONE TAB [Concomitant]
     Dosage: 1 DF, DAILY
     Route: 048

REACTIONS (18)
  - PULMONARY EMBOLISM [None]
  - GLOSSODYNIA [None]
  - DECUBITUS ULCER [None]
  - JOINT STIFFNESS [None]
  - RASH [None]
  - RESPIRATORY FAILURE [None]
  - PNEUMONIA [None]
  - VOMITING [None]
  - MOTOR DYSFUNCTION [None]
  - SENSORY LOSS [None]
  - PROGRESSIVE MULTIFOCAL LEUKOENCEPHALOPATHY [None]
  - CENTRAL NERVOUS SYSTEM LESION [None]
  - STOMATITIS [None]
  - PANIC ATTACK [None]
  - MALAISE [None]
  - MUSCULOSKELETAL PAIN [None]
  - NAUSEA [None]
  - CEREBELLAR SYNDROME [None]
